FAERS Safety Report 15267042 (Version 1)
Quarter: 2018Q3

REPORT INFORMATION
  Report Type: Report from Study
  Country: ES (occurrence: ES)
  Receive Date: 20180810
  Receipt Date: 20180810
  Transmission Date: 20181010
  Serious: Yes (Other)
  Sender: FDA-Public Use
  Company Number: ES-TEVA-2018-ES-866833

PATIENT
  Sex: Female

DRUGS (10)
  1. ALPRAZOLAM. [Suspect]
     Active Substance: ALPRAZOLAM
     Indication: PRODUCT USED FOR UNKNOWN INDICATION
     Dosage: DOSAGE FORM: UNSPECIFIED
     Route: 065
  2. LEVOTHYROXINE. [Suspect]
     Active Substance: LEVOTHYROXINE
     Indication: PRODUCT USED FOR UNKNOWN INDICATION
     Dosage: DOSAGE FORM: UNSPECIFIED
     Route: 065
  3. RISPERIDONE. [Suspect]
     Active Substance: RISPERIDONE
     Indication: BIPOLAR DISORDER
     Dosage: DOSAGE FORM: UNSPECIFIED
     Route: 048
  4. ALPRAZOLAM. [Suspect]
     Active Substance: ALPRAZOLAM
     Dosage: DOSAGE FORM: UNSPECIFIED
     Route: 065
  5. INVEGA [Suspect]
     Active Substance: PALIPERIDONE
     Indication: BIPOLAR DISORDER
     Dosage: DOSAGE FORM: OROS (ORAL OSMOTIC) THERAPEUTIC SYSTEM TABLET
     Route: 048
  6. VENLAFAXINE [Suspect]
     Active Substance: VENLAFAXINE HYDROCHLORIDE
     Indication: PRODUCT USED FOR UNKNOWN INDICATION
     Dosage: DOSAGE FORM: UNSPECIFIED
     Route: 065
  7. INVEGA [Suspect]
     Active Substance: PALIPERIDONE
     Dosage: DOSAGE FORM: OROS (ORAL OSMOTIC) THERAPEUTIC SYSTEM TABLET
     Route: 048
  8. RISPERIDONE. [Suspect]
     Active Substance: RISPERIDONE
     Dosage: DOSAGE FORM: UNSPECIFIED
     Route: 048
  9. VENLAFAXINE [Suspect]
     Active Substance: VENLAFAXINE HYDROCHLORIDE
     Dosage: DOSAGE FORM: UNSPECIFIED
     Route: 065
  10. OXCARBAZEPINE. [Suspect]
     Active Substance: OXCARBAZEPINE
     Indication: PRODUCT USED FOR UNKNOWN INDICATION
     Dosage: DOSAGE FORM: UNSPECIFIED
     Route: 065

REACTIONS (17)
  - Gingival pain [Not Recovered/Not Resolved]
  - Weight increased [Unknown]
  - Hallucination, auditory [Recovered/Resolved]
  - Headache [Not Recovered/Not Resolved]
  - Abdominal discomfort [Not Recovered/Not Resolved]
  - Abdominal pain [Unknown]
  - Dry eye [Unknown]
  - Insomnia [Recovered/Resolved]
  - Phobia [Unknown]
  - Depression [Recovered/Resolved]
  - Back pain [Not Recovered/Not Resolved]
  - Treatment noncompliance [Unknown]
  - Personality disorder [Unknown]
  - Abnormal behaviour [Recovered/Resolved]
  - Abnormal sensation in eye [Recovered/Resolved]
  - Wound [Unknown]
  - Psychotic symptom [Unknown]

NARRATIVE: CASE EVENT DATE: 201506
